FAERS Safety Report 16792550 (Version 2)
Quarter: 2020Q2

REPORT INFORMATION
  Report Type: Report from Study
  Country: CL (occurrence: CL)
  Receive Date: 20190910
  Receipt Date: 20200619
  Transmission Date: 20200713
  Serious: Yes (Hospitalization)
  Sender: FDA-Public Use
  Company Number: CL-ACTELION-A-NJ2019-195411

PATIENT
  Age: 29 Year
  Sex: Female

DRUGS (2)
  1. ADEMPAS [Suspect]
     Active Substance: RIOCIGUAT
     Indication: PRODUCT USED FOR UNKNOWN INDICATION
     Dosage: UNK
     Route: 065
  2. VENTAVIS [Suspect]
     Active Substance: ILOPROST
     Indication: PULMONARY HYPERTENSION
     Dosage: 2 ML, 6 TIMES A DAY
     Route: 055
     Dates: start: 20190813

REACTIONS (3)
  - Hospitalisation [Not Recovered/Not Resolved]
  - Device power source issue [Unknown]
  - Headache [Unknown]
